FAERS Safety Report 8014386-2 (Version None)
Quarter: 2011Q4

REPORT INFORMATION
  Report Type: 
  Country: None (occurrence: None)
  Receive Date: 20111229
  Receipt Date: 20111215
  Transmission Date: 20120403
  Serious: Yes (Hospitalization, Other)
  Sender: FDA-Public Use
  Company Number: PHHY2011BR110001

PATIENT
  Sex: Female

DRUGS (1)
  1. GLEEVEC [Suspect]
     Indication: CHRONIC MYELOID LEUKAEMIA
     Dosage: 100 MG, DAILY

REACTIONS (5)
  - INFARCTION [None]
  - INFECTION [None]
  - THROMBOCYTOPENIA [None]
  - LEUKOCYTOSIS [None]
  - PYREXIA [None]
